FAERS Safety Report 7951234-0 (Version None)
Quarter: 2011Q4

REPORT INFORMATION
  Report Type: 
  Country: None (occurrence: None)
  Receive Date: 20111201
  Receipt Date: 20111122
  Transmission Date: 20120403
  Serious: Yes (Other)
  Sender: FDA-Public Use
  Company Number: PHFR2010GB04506

PATIENT
  Sex: Male

DRUGS (1)
  1. CLOZARIL [Suspect]
     Indication: SCHIZOPHRENIA
     Dosage: 250 MG/DAY
     Route: 048
     Dates: start: 20100817

REACTIONS (2)
  - MEAN CELL VOLUME DECREASED [None]
  - MEAN CELL HAEMOGLOBIN DECREASED [None]
